FAERS Safety Report 4553106-0 (Version None)
Quarter: 2005Q1

REPORT INFORMATION
  Report Type: 
  Country: None (occurrence: None)
  Receive Date: 20050112
  Receipt Date: 20041222
  Transmission Date: 20050727
  Serious: Yes (Other)
  Sender: FDA-Public Use
  Company Number: US_0412109609

PATIENT
  Age: 44 Year
  Sex: Female

DRUGS (1)
  1. ZYPREXA [Suspect]
     Indication: FIBROMYALGIA
     Dates: start: 20021226

REACTIONS (4)
  - DIABETES MELLITUS [None]
  - HYPERTENSION [None]
  - MYOCARDIAL INFARCTION [None]
  - WEIGHT INCREASED [None]
